FAERS Safety Report 4320886-9 (Version None)
Quarter: 2004Q1

REPORT INFORMATION
  Report Type: 
  Country: None (occurrence: None)
  Receive Date: 20040322
  Receipt Date: 20040310
  Transmission Date: 20041129
  Serious: Yes (Hospitalization)
  Sender: FDA-Public Use
  Company Number: PHBS2004JP03399

PATIENT
  Age: 64 Year
  Sex: Male

DRUGS (3)
  1. ANAFRANIL [Suspect]
     Indication: MAJOR DEPRESSION
  2. MAPROTILINE HYDROCHLORIDE [Suspect]
     Indication: MAJOR DEPRESSION
     Dosage: 30 MG/D
     Route: 048
  3. SULPIRIDE [Concomitant]
     Dosage: 150 MG/D
     Route: 065

REACTIONS (1)
  - STATUS EPILEPTICUS [None]
